FAERS Safety Report 14651548 (Version 1)
Quarter: 2018Q1

REPORT INFORMATION
  Report Type: Spontaneous
  Country: FR (occurrence: FR)
  Receive Date: 20180317
  Receipt Date: 20180317
  Transmission Date: 20180509
  Serious: Yes (Other)
  Sender: FDA-Public Use
  Company Number: FR-MERCK KGAA-2043977

PATIENT
  Age: 50 Year
  Sex: Female

DRUGS (1)
  1. NOVOTHYROX [Suspect]
     Active Substance: LEVOTHYROXINE SODIUM
     Indication: PRODUCT USED FOR UNKNOWN INDICATION

REACTIONS (13)
  - Loss of personal independence in daily activities [Recovering/Resolving]
  - Alopecia [Recovering/Resolving]
  - Social avoidant behaviour [Recovering/Resolving]
  - Personal relationship issue [Recovering/Resolving]
  - Headache [Recovering/Resolving]
  - Irritability [Recovering/Resolving]
  - Hypothyroidism [Recovering/Resolving]
  - Red blood cell sedimentation rate increased [Recovering/Resolving]
  - Fatigue [Recovering/Resolving]
  - Serum ferritin decreased [Recovering/Resolving]
  - Crying [Recovering/Resolving]
  - Arthralgia [Recovering/Resolving]
  - Feeling abnormal [Recovering/Resolving]

NARRATIVE: CASE EVENT DATE: 201705
